FAERS Safety Report 5186309-5 (Version None)
Quarter: 2006Q4

REPORT INFORMATION
  Report Type: 
  Country: None (occurrence: None)
  Receive Date: 20061213
  Receipt Date: 20061206
  Transmission Date: 20070319
  Serious: Yes (Other)
  Sender: FDA-Public Use
  Company Number: HQWYE564407DEC06

PATIENT
  Age: 85 Year
  Sex: Female

DRUGS (3)
  1. CORDARONE [Suspect]
     Indication: ATRIAL FIBRILLATION
     Dosage: 200 MG 1X PER 1 DAY ORAL
     Route: 048
     Dates: end: 20060502
  2. SHELCAL (CALCIUM CARBONATE/COLECLCIFEROL) [Concomitant]
  3. ASPIRIN [Concomitant]

REACTIONS (3)
  - FALL [None]
  - GAIT DISTURBANCE [None]
  - PLEURAL EFFUSION [None]
